FAERS Safety Report 7516011-3 (Version None)
Quarter: 2011Q2

REPORT INFORMATION
  Report Type: 
  Country: None (occurrence: None)
  Receive Date: 20110520
  Receipt Date: 20110510
  Transmission Date: 20111010
  Serious: Yes (Death, Hospitalization)
  Sender: FDA-Public Use
  Company Number: UTC-007024

PATIENT
  Age: 71 Year
  Sex: Female

DRUGS (7)
  1. NEURONTIN [Concomitant]
  2. PREDNISONE [Concomitant]
  3. REVATIO [Concomitant]
  4. TRACLEER [Concomitant]
  5. REMODULIN [Suspect]
     Indication: PULMONARY ARTERIAL HYPERTENSION
     Dosage: 2.88 UG/KG (0.002 UG/KG, 1 IN1 MIN) SUBCUTANEOUS
     Route: 058
     Dates: start: 20110503
  6. PROCARDIA XL [Concomitant]
  7. DIURETICS (DIURETICS) [Concomitant]

REACTIONS (1)
  - GENERAL PHYSICAL HEALTH DETERIORATION [None]
